FAERS Safety Report 25182166 (Version 1)
Quarter: 2025Q2

REPORT INFORMATION
  Report Type: Spontaneous
  Country: US (occurrence: US)
  Receive Date: 20250410
  Receipt Date: 20250410
  Transmission Date: 20250716
  Serious: No
  Sender: KINIKSA PHARMACEUTICALS
  Company Number: US-Kiniksa Pharmaceuticals Ltd.-2024KPU000215

PATIENT
  Age: 72 Year
  Sex: Male

DRUGS (1)
  1. ARCALYST [Suspect]
     Active Substance: RILONACEPT
     Indication: Product used for unknown indication
     Dosage: 160MG X2 DOSES (LOADING DOSE) ON 13-FEB-2024
     Route: 058
     Dates: start: 20230213

REACTIONS (7)
  - Device difficult to use [Unknown]
  - Injection site pain [Unknown]
  - Injection site erythema [Not Recovered/Not Resolved]
  - Injection site inflammation [Not Recovered/Not Resolved]
  - Injection site irritation [Unknown]
  - Injection site reaction [Unknown]
  - Discontinued product administered [Unknown]

NARRATIVE: CASE EVENT DATE: 20240201
